FAERS Safety Report 7968347-X (Version None)
Quarter: 2011Q4

REPORT INFORMATION
  Report Type: 
  Country: None (occurrence: None)
  Receive Date: 20111209
  Receipt Date: 20111205
  Transmission Date: 20120403
  Serious: Yes (Death)
  Sender: FDA-Public Use
  Company Number: US-CELGENEUS-163-21880-11120628

PATIENT
  Sex: Female

DRUGS (11)
  1. CALCIUM ANTACID [Concomitant]
     Route: 065
  2. ASPIRIN [Concomitant]
     Dosage: 81
     Route: 065
  3. COUMADIN [Concomitant]
     Route: 065
  4. PAROXETINE HCL [Concomitant]
     Route: 065
  5. REVLIMID [Suspect]
     Dosage: 5 MILLIGRAM
     Route: 048
     Dates: start: 20111007
  6. GABAPENTIN [Concomitant]
     Route: 065
  7. AMLODIPINE BESY [Concomitant]
     Route: 065
  8. BENAZEPRIL HYDROCHLORIDE [Concomitant]
     Route: 065
  9. PAXIL CR [Concomitant]
     Route: 065
  10. TERAZOSIN HCL [Concomitant]
     Route: 065
  11. RENAGEL [Concomitant]
     Route: 065

REACTIONS (1)
  - DEATH [None]
